FAERS Safety Report 12749648 (Version 1)
Quarter: 2016Q3

REPORT INFORMATION
  Report Type: Spontaneous
  Country: FR (occurrence: FR)
  Receive Date: 20160916
  Receipt Date: 20160916
  Transmission Date: 20161109
  Serious: Yes (Other)
  Sender: FDA-Public Use
  Company Number: FR-MYLANLABS-2016M1039847

PATIENT

DRUGS (2)
  1. EPIPEN [Suspect]
     Active Substance: EPINEPHRINE
     Indication: FOOD ALLERGY
     Dosage: 0.3 MG/ML, UNK
     Route: 058
  2. EPIPEN [Suspect]
     Active Substance: EPINEPHRINE
     Dosage: 0.3 MG/ML, UNK
     Route: 058

REACTIONS (1)
  - Device failure [Recovered/Resolved]
